FAERS Safety Report 9617677 (Version 3)
Quarter: 2013Q4

REPORT INFORMATION
  Report Type: Spontaneous
  Country: MX (occurrence: MX)
  Receive Date: 20131011
  Receipt Date: 20131121
  Transmission Date: 20140711
  Serious: Yes (Death, Hospitalization, Other)
  Sender: FDA-Public Use
  Company Number: MX-ELI_LILLY_AND_COMPANY-MX201310001682

PATIENT
  Age: 90 Year
  Sex: Male

DRUGS (3)
  1. FORTEO [Suspect]
     Indication: OSTEOPOROSIS
     Dosage: 20 UG, QD
     Route: 058
     Dates: start: 201205
  2. FORTEO [Suspect]
     Indication: MULTIPLE FRACTURES
  3. CALTRATE + VITAMIN D [Concomitant]

REACTIONS (5)
  - Acute myocardial infarction [Fatal]
  - Hip fracture [Unknown]
  - Fall [Unknown]
  - Gait disturbance [Unknown]
  - Drug ineffective [Unknown]
